FAERS Safety Report 4628565-5 (Version None)
Quarter: 2005Q2

REPORT INFORMATION
  Report Type: 
  Country: None (occurrence: None)
  Receive Date: 20050404
  Receipt Date: 20050321
  Transmission Date: 20051028
  Serious: No
  Sender: FDA-Public Use
  Company Number: 2005CG00593

PATIENT
  Sex: Male
  Weight: 124 kg

DRUGS (7)
  1. ATACAND [Suspect]
     Indication: HYPERTENSION
     Dosage: 8 MG QD PO
     Route: 048
     Dates: start: 19990402, end: 20001102
  2. ATACAND [Suspect]
     Indication: HYPERTENSION
     Dosage: 16 MG QD PO
     Route: 048
     Dates: start: 20001103
  3. SOPROL [Suspect]
     Indication: HYPERTENSION
  4. FLUDEX [Suspect]
     Indication: HYPERTENSION
  5. COVERSYL /FRA/ [Suspect]
     Indication: HYPERTENSION
  6. GLUCOPHAGE [Suspect]
     Indication: DIABETES MELLITUS NON-INSULIN-DEPENDENT
  7. MEDIATOR [Suspect]
     Indication: DIABETES MELLITUS NON-INSULIN-DEPENDENT

REACTIONS (1)
  - PEMPHIGOID [None]
